FAERS Safety Report 9733770 (Version 1)
Quarter: 2013Q4

REPORT INFORMATION
  Report Type: Spontaneous
  Country: US (occurrence: US)
  Receive Date: 20131205
  Receipt Date: 20131205
  Transmission Date: 20140711
  Serious: No
  Sender: FDA-Public Use
  Company Number: US-PFIZER INC-2013345076

PATIENT
  Age: 6 Decade
  Sex: Male

DRUGS (3)
  1. ELIQUIS [Suspect]
     Dosage: 5 MG, UNK
  2. AMIODARONE HCL [Suspect]
  3. LISINOPRIL [Suspect]

REACTIONS (1)
  - Rash [Recovering/Resolving]
